FAERS Safety Report 14098973 (Version 1)
Quarter: 2017Q4

REPORT INFORMATION
  Report Type: Spontaneous
  Country: PT (occurrence: PT)
  Receive Date: 20171017
  Receipt Date: 20171017
  Transmission Date: 20180321
  Serious: Yes (Hospitalization, Other)
  Sender: FDA-Public Use
  Company Number: PT-WEST-WARD PHARMACEUTICALS CORP.-PT-H14001-17-04004

PATIENT
  Age: 84 Year
  Sex: Female

DRUGS (10)
  1. AQUA BIDESTILADA ESTERIL BRAUM [Concomitant]
     Indication: MEDICATION DILUTION
     Dosage: ADMINISTRATION AS A 3-MINUTE BOLUS VIA A PERIPHERAL VENOUS CATHETER
     Route: 042
     Dates: start: 20170923, end: 20170926
  2. PANTOPRAZOL SANDOZ [Concomitant]
     Indication: PROPHYLAXIS AGAINST GASTROINTESTINAL ULCER
     Dosage: ADMINISTRATION AS A 3-MINUTE BOLUS VIA A PERIPHERAL VENOUS CATHETER
     Route: 048
     Dates: start: 20170923
  3. SORO FISIOLOGICO B.BRAUN [Concomitant]
     Indication: MEDICATION DILUTION
     Dosage: ADMINISTRATION AS A 3-MINUTE BOLUS VIA A PERIPHERAL VENOUS CATHETER
     Route: 042
     Dates: start: 20170923, end: 20170926
  4. AMOXICILINA + ACIDO CLAVULANICO HIKMA [Suspect]
     Active Substance: AMOXICILLIN\CLAVULANATE POTASSIUM
     Indication: PNEUMONIA
     Dosage: 1000MG+200MG
     Route: 042
     Dates: start: 20170923, end: 20170926
  5. MODERLAX [Concomitant]
     Indication: CONSTIPATION
     Dosage: ADMINISTRATION AS A 3-MINUTE BOLUS VIA A PERIPHERAL VENOUS CATHETER
     Route: 048
     Dates: start: 20170923
  6. BUNIL [Concomitant]
     Indication: AGITATION
     Dosage: ADMINISTRATION AS A 3-MINUTE BOLUS VIA A PERIPHERAL VENOUS CATHETER
     Route: 048
     Dates: start: 20170923
  7. LOVENOX [Concomitant]
     Active Substance: ENOXAPARIN SODIUM
     Indication: THROMBOSIS PROPHYLAXIS
     Dosage: ADMINISTRATION AS A 3-MINUTE BOLUS VIA A PERIPHERAL VENOUS CATHETER
     Route: 058
     Dates: start: 20170923
  8. CONCOR IC [Concomitant]
     Indication: CARDIAC FAILURE
     Dosage: ADMINISTRATION AS A 3-MINUTE BOLUS VIA A PERIPHERAL VENOUS CATHETER
     Route: 048
     Dates: start: 20170923
  9. LASIX [Concomitant]
     Active Substance: FUROSEMIDE
     Indication: HYPERTENSION
     Dosage: ADMINISTRATION AS A 3-MINUTE BOLUS VIA A PERIPHERAL VENOUS CATHETER
     Route: 042
     Dates: start: 20170923
  10. AZITROMICINA GENERIS 500 MG COMPRIMIDOS REVESTIDOS [Concomitant]
     Indication: PNEUMONIA
     Dosage: ADMINISTRATION AS A 3-MINUTE BOLUS VIA A PERIPHERAL VENOUS CATHETER
     Route: 048
     Dates: start: 20170923, end: 20170926

REACTIONS (3)
  - Nasal ulcer [Recovered/Resolved]
  - Ear injury [Recovered/Resolved]
  - Mouth ulceration [Recovered/Resolved]

NARRATIVE: CASE EVENT DATE: 20170926
